FAERS Safety Report 16054689 (Version 2)
Quarter: 2021Q4

REPORT INFORMATION
  Report Type: Spontaneous
  Country: US (occurrence: US)
  Receive Date: 20190309
  Receipt Date: 20211019
  Transmission Date: 20220303
  Serious: Yes (Other)
  Sender: FDA-Public Use
  Company Number: PHEH2019US010173

PATIENT
  Sex: Male
  Weight: 82.6 kg

DRUGS (2)
  1. TASIGNA [Suspect]
     Active Substance: NILOTINIB
     Indication: Acute lymphocytic leukaemia
     Dosage: 400 MG, BID
     Route: 048
     Dates: start: 201211, end: 201506
  2. TASIGNA [Suspect]
     Active Substance: NILOTINIB
     Indication: Chronic myeloid leukaemia

REACTIONS (18)
  - Mitral valve incompetence [Unknown]
  - Angina unstable [Unknown]
  - Bradycardia [Unknown]
  - Neuropathy peripheral [Unknown]
  - Myocardial infarction [Unknown]
  - Coronary artery disease [Unknown]
  - Arteriosclerosis coronary artery [Unknown]
  - Injury [Unknown]
  - Left ventricular dilatation [Unknown]
  - Hypertension [Unknown]
  - Insomnia [Unknown]
  - Fatigue [Unknown]
  - Chest pain [Unknown]
  - Arteriosclerosis [Unknown]
  - Dyslipidaemia [Unknown]
  - Anxiety [Unknown]
  - Emotional distress [Unknown]
  - Pain [Unknown]
